FAERS Safety Report 15350078 (Version 1)
Quarter: 2018Q3

REPORT INFORMATION
  Report Type: Spontaneous
  Country: JP (occurrence: JP)
  Receive Date: 20180904
  Receipt Date: 20180904
  Transmission Date: 20181010
  Serious: Yes (Death)
  Sender: FDA-Public Use
  Company Number: JP-009507513-1808JPN002922J

PATIENT
  Age: 68 Year
  Sex: Male
  Weight: 57 kg

DRUGS (19)
  1. KOSO?SAN [Concomitant]
     Dosage: UNK
     Route: 048
     Dates: start: 20180508, end: 20180702
  2. SM [Concomitant]
     Dosage: UNK
     Route: 048
     Dates: start: 20180501, end: 20180706
  3. UCHIDA HACHIMIGAN M [Concomitant]
     Dosage: UNK
     Route: 048
     Dates: start: 20180507, end: 20180702
  4. JUZENTAIHOTO [Concomitant]
     Active Substance: HERBALS
     Dosage: UNK
     Route: 048
     Dates: start: 20180508, end: 20180702
  5. JARDIANCE [Concomitant]
     Active Substance: EMPAGLIFLOZIN
     Dosage: UNK
     Route: 048
     Dates: start: 20180615, end: 20180625
  6. KEYTRUDA [Suspect]
     Active Substance: PEMBROLIZUMAB
     Indication: LUNG ADENOCARCINOMA STAGE IV
     Dosage: 200 MG, ONCE
     Route: 041
     Dates: start: 20180619, end: 20180619
  7. METGLUCO [Concomitant]
     Active Substance: METFORMIN HYDROCHLORIDE
     Dosage: UNK
     Route: 048
     Dates: end: 20180621
  8. TENELIA [Concomitant]
     Active Substance: TENELIGLIPTIN
     Dosage: UNK
     Route: 048
     Dates: end: 20180704
  9. DENOTAS [Concomitant]
     Active Substance: CALCIUM CARBONATE\CHOLECALCIFEROL\MAGNESIUM CARBONATE
     Dosage: UNK
     Route: 048
     Dates: start: 20180425, end: 20180706
  10. ZOLPIDEM TARTRATE. [Concomitant]
     Active Substance: ZOLPIDEM TARTRATE
     Dosage: UNK
     Route: 048
     Dates: start: 20180424, end: 20180707
  11. DIHYDROCODEINE PHOSPHATE [Concomitant]
     Active Substance: DIHYDROCODEINE PHOSPHATE
     Dosage: UNK
     Route: 048
     Dates: start: 20180501, end: 20180707
  12. FUROSEMIDE. [Concomitant]
     Active Substance: FUROSEMIDE
     Dosage: UNK
     Route: 048
     Dates: start: 20180616, end: 20180706
  13. FUROSEMIDE. [Concomitant]
     Active Substance: FUROSEMIDE
     Dosage: UNK
     Route: 048
     Dates: start: 20180613, end: 20180615
  14. CALONAL [Concomitant]
     Active Substance: ACETAMINOPHEN
     Dosage: UNK
     Route: 048
     Dates: start: 20180619, end: 20180702
  15. KEISHIKASHAKUYAKUDAIOTO [Concomitant]
     Active Substance: HERBALS
     Dosage: UNK
     Route: 048
     Dates: start: 20180525, end: 20180702
  16. PANVITAN [Concomitant]
     Dosage: UNK
     Route: 048
     Dates: start: 20180411, end: 20180706
  17. NEXIUM [Concomitant]
     Active Substance: ESOMEPRAZOLE MAGNESIUM
     Dosage: UNK
     Route: 048
     Dates: start: 20180501, end: 20180706
  18. FORXIGA [Concomitant]
     Active Substance: DAPAGLIFLOZIN
     Dosage: UNK
     Route: 048
     Dates: end: 20180614
  19. MAGMITT [Concomitant]
     Active Substance: MAGNESIUM OXIDE
     Dosage: UNK
     Route: 048
     Dates: start: 20180526, end: 20180704

REACTIONS (1)
  - Hypoglycaemia [Fatal]

NARRATIVE: CASE EVENT DATE: 20180621
